FAERS Safety Report 5536818-1 (Version None)
Quarter: 2007Q4

REPORT INFORMATION
  Report Type: 
  Country: None (occurrence: None)
  Receive Date: 20071204
  Receipt Date: 20071123
  Transmission Date: 20080405
  Serious: No
  Sender: FDA-Public Use
  Company Number: 2007SP022650

PATIENT
  Age: 49 Year
  Sex: Female
  Weight: 79 kg

DRUGS (6)
  1. DESLORATADINE [Suspect]
     Indication: ALLERGIC PHARYNGITIS
     Dosage: 5 MG; ONCE;PO
     Route: 048
     Dates: start: 20071022, end: 20071022
  2. DESLORATADINE [Suspect]
     Indication: RHINITIS ALLERGIC
     Dosage: 5 MG; ONCE;PO
     Route: 048
     Dates: start: 20071022, end: 20071022
  3. BETAMATHASONE DIPROPIONATE [Suspect]
     Indication: URTICARIA
     Dosage: TOP
     Route: 061
     Dates: start: 20071023
  4. METOPROLOL TARTRATE [Concomitant]
  5. INIPOMP [Concomitant]
  6. ROVAMYCINE [Concomitant]

REACTIONS (3)
  - ANGIOEDEMA [None]
  - OEDEMA [None]
  - PRURITUS [None]
